FAERS Safety Report 14144482 (Version 1)
Quarter: 2017Q4

REPORT INFORMATION
  Report Type: Spontaneous
  Country: IN (occurrence: IN)
  Receive Date: 20171031
  Receipt Date: 20171031
  Transmission Date: 20180321
  Serious: Yes (Other)
  Sender: FDA-Public Use
  Company Number: IN-SUN PHARMACEUTICAL INDUSTRIES LTD-2017R1-145480

PATIENT
  Age: 18 Year
  Sex: Female

DRUGS (2)
  1. CLOZAPINE. [Suspect]
     Active Substance: CLOZAPINE
     Dosage: (AT BEDTIME OVER A PERIOD OF 4 WEEKS)
     Route: 065
  2. CLOZAPINE. [Suspect]
     Active Substance: CLOZAPINE
     Indication: ABNORMAL BEHAVIOUR
     Dosage: 25 MG, DAILY
     Route: 065

REACTIONS (2)
  - Oculogyric crisis [Recovered/Resolved]
  - Drug withdrawal syndrome [Recovered/Resolved]
